FAERS Safety Report 6935687-2 (Version None)
Quarter: 2010Q3

REPORT INFORMATION
  Report Type: 
  Country: None (occurrence: None)
  Receive Date: 20100823
  Receipt Date: 20100813
  Transmission Date: 20110219
  Serious: Yes (Other)
  Sender: FDA-Public Use
  Company Number: US-JNJFOC-20100806015

PATIENT
  Sex: Female
  Weight: 63.5 kg

DRUGS (5)
  1. TOPAMAX [Suspect]
     Indication: MIGRAINE PROPHYLAXIS
     Route: 048
  2. TOPAMAX [Suspect]
     Route: 048
  3. TOPAMAX [Suspect]
     Route: 048
  4. TOPAMAX [Suspect]
     Route: 048
  5. MACRODANTIN [Concomitant]
     Indication: CYSTITIS
     Route: 048

REACTIONS (6)
  - HYPERSENSITIVITY [None]
  - INTENTIONAL DRUG MISUSE [None]
  - MIGRAINE [None]
  - RASH GENERALISED [None]
  - RASH PRURITIC [None]
  - TREATMENT NONCOMPLIANCE [None]
